FAERS Safety Report 12447267 (Version 1)
Quarter: 2016Q2

REPORT INFORMATION
  Report Type: Spontaneous
  Country: HU (occurrence: HU)
  Receive Date: 20160608
  Receipt Date: 20160608
  Transmission Date: 20160815
  Serious: Yes (Other)
  Sender: FDA-Public Use
  Company Number: HU-ELI_LILLY_AND_COMPANY-HU201605010576

PATIENT
  Age: 55 Year
  Sex: Female

DRUGS (1)
  1. FORSTEO [Suspect]
     Active Substance: TERIPARATIDE
     Indication: PRODUCT USED FOR UNKNOWN INDICATION
     Dosage: UNK UNK, UNKNOWN
     Route: 065
     Dates: start: 201406, end: 201512

REACTIONS (5)
  - Urine calcium increased [Unknown]
  - Wrist fracture [Unknown]
  - Renal pain [Unknown]
  - Nephrolithiasis [Unknown]
  - Fall [Unknown]

NARRATIVE: CASE EVENT DATE: 201408
